FAERS Safety Report 5238165-4 (Version None)
Quarter: 2007Q1

REPORT INFORMATION
  Report Type: 
  Country: None (occurrence: None)
  Receive Date: 20070215
  Receipt Date: 20070202
  Transmission Date: 20070707
  Serious: Yes (Hospitalization)
  Sender: FDA-Public Use
  Company Number: PHRM2007FR00725

PATIENT
  Age: 61 Year
  Sex: Female
  Weight: 64 kg

DRUGS (15)
  1. TRILEPTAL [Suspect]
     Indication: GLIOBLASTOMA
     Dosage: 150 MG, BID
     Route: 048
     Dates: start: 20060101, end: 20060901
  2. TRILEPTAL [Suspect]
     Dosage: 300 MG, BID
     Route: 048
     Dates: start: 20060901, end: 20061101
  3. TRILEPTAL [Suspect]
     Dosage: 600 MG, BID
     Route: 048
     Dates: start: 20061101, end: 20061214
  4. SOLUPRED [Concomitant]
     Indication: GLIOBLASTOMA
     Route: 048
     Dates: start: 20060401
  5. KARDEGIC [Concomitant]
     Route: 048
     Dates: start: 20060814, end: 20061006
  6. TEMODAL [Concomitant]
     Indication: GLIOBLASTOMA
     Dosage: 150 MG/M2, QD
     Route: 048
     Dates: start: 20060426, end: 20060430
  7. TEMODAL [Concomitant]
     Dosage: 150 MG/M2, QD
     Route: 048
     Dates: start: 20060522, end: 20060526
  8. TEMODAL [Concomitant]
     Dosage: 150 MG/M2, QD
     Route: 048
     Dates: start: 20060619, end: 20060623
  9. TEMODAL [Concomitant]
     Dosage: 150 MG/M2, QD
     Route: 048
     Dates: start: 20060717, end: 20060721
  10. TEMODAL [Concomitant]
     Dosage: 150 MG/M2, QD
     Route: 048
     Dates: start: 20060814, end: 20060818
  11. TEMODAL [Concomitant]
     Dosage: 150 MG/M2, QD
     Route: 048
     Dates: start: 20060911, end: 20060915
  12. TEMODAL [Concomitant]
     Dosage: 75 MG, QD
     Route: 048
     Dates: start: 20061009, end: 20061030
  13. TEMODAL [Concomitant]
     Dosage: 150 MG/M2, QD
     Route: 048
     Dates: start: 20061106, end: 20061110
  14. TEMODAL [Concomitant]
     Dosage: 150 MG/M2, QD
     Route: 048
     Dates: start: 20061204, end: 20061208
  15. RADIOTHERAPY [Concomitant]
     Indication: GLIOBLASTOMA
     Dosage: 60 GY IN 30 FRACTIONS
     Dates: start: 20060124, end: 20060306

REACTIONS (7)
  - APHASIA [None]
  - CONDITION AGGRAVATED [None]
  - EPILEPSY [None]
  - HEMIPARESIS [None]
  - HYPONATRAEMIA [None]
  - HYPOTENSION [None]
  - MALAISE [None]
